FAERS Safety Report 8545902-X (Version None)
Quarter: 2012Q3

REPORT INFORMATION
  Report Type: 
  Country: None (occurrence: None)
  Receive Date: 20120727
  Receipt Date: 20111118
  Transmission Date: 20120928
  Serious: No
  Sender: FDA-Public Use
  Company Number: US-ASTRAZENECA-2011SE70410

PATIENT
  Age: 40 Year
  Sex: Male
  Weight: 90.7 kg

DRUGS (5)
  1. PROPRANOLOL [Concomitant]
     Indication: BLOOD PRESSURE
  2. VITAMIN TAB [Concomitant]
  3. SEROQUEL [Suspect]
     Indication: CRANIOCEREBRAL INJURY
     Route: 048
     Dates: start: 20110801
  4. DIVALPROEX SODIUM [Concomitant]
  5. CITALOPRAM HYDROBROMIDE [Concomitant]

REACTIONS (2)
  - OFF LABEL USE [None]
  - DRUG WITHDRAWAL SYNDROME [None]
